FAERS Safety Report 4897207-6 (Version None)
Quarter: 2005Q4

REPORT INFORMATION
  Report Type: 
  Country: None (occurrence: None)
  Receive Date: 20051223
  Receipt Date: 20051006
  Transmission Date: 20060501
  Serious: No
  Sender: FDA-Public Use
  Company Number: 05P-163-0312986-00

PATIENT
  Age: 47 Year
  Sex: Female
  Weight: 136 kg

DRUGS (7)
  1. HUMIRA [Suspect]
     Indication: RHEUMATOID ARTHRITIS
     Dosage: 40 MG, 1 IN 2 WK, SUBCUTANEOUS
     Route: 058
     Dates: start: 20040101
  2. LANSOPRAZOLE [Concomitant]
  3. LEXAPRO [Concomitant]
  4. CELECOXIB [Concomitant]
  5. GABAPENTIN [Concomitant]
  6. SALBUTAMOL [Concomitant]
  7. PREDNISONE [Concomitant]

REACTIONS (1)
  - FURUNCLE [None]
